FAERS Safety Report 4860527-5 (Version None)
Quarter: 2005Q4

REPORT INFORMATION
  Report Type: 
  Country: None (occurrence: None)
  Receive Date: 20051219
  Receipt Date: 20051128
  Transmission Date: 20060501
  Serious: Yes (Life-Threatening, Hospitalization)
  Sender: FDA-Public Use
  Company Number: PHNU2005PL03969

PATIENT
  Age: 85 Year
  Weight: 50 kg

DRUGS (1)
  1. DIOVAN HCT [Suspect]
     Dosage: UNK, UNK
     Route: 048

REACTIONS (6)
  - ASTHENIA [None]
  - BLOOD CREATININE INCREASED [None]
  - BLOOD UREA INCREASED [None]
  - HYPERKALAEMIA [None]
  - NODAL ARRHYTHMIA [None]
  - RENAL FAILURE ACUTE [None]
